FAERS Safety Report 6271389-6 (Version None)
Quarter: 2009Q3

REPORT INFORMATION
  Report Type: 
  Country: None (occurrence: None)
  Receive Date: 20090717
  Receipt Date: 20090706
  Transmission Date: 20100115
  Serious: Yes (Hospitalization, Other)
  Sender: FDA-Public Use
  Company Number: US-ROCHE-642701

PATIENT
  Age: 85 Year
  Sex: Female

DRUGS (3)
  1. BONIVA [Suspect]
     Indication: OSTEOPENIA
     Route: 048
     Dates: end: 20090208
  2. BONIVA [Suspect]
     Route: 048
     Dates: start: 20090610
  3. ASPIRIN [Concomitant]

REACTIONS (4)
  - ATRIAL FIBRILLATION [None]
  - HERPES ZOSTER [None]
  - MUSCLE SPASMS [None]
  - POST HERPETIC NEURALGIA [None]
